FAERS Safety Report 5340234-5 (Version None)
Quarter: 2007Q2

REPORT INFORMATION
  Report Type: 
  Country: None (occurrence: None)
  Receive Date: 20070405
  Receipt Date: 20070207
  Transmission Date: 20071010
  Serious: No
  Sender: FDA-Public Use
  Company Number: US200701003503

PATIENT
  Age: 54 Year
  Sex: Male
  Weight: 98.9 kg

DRUGS (15)
  1. CYMBALTA [Suspect]
     Dosage: SEE IMAGE
  2. CIALIS [Concomitant]
  3. CLONAZEPAM [Concomitant]
  4. LISINOPRIL [Concomitant]
  5. GLIPIZIDE XL (GLIPIZIDE) [Concomitant]
  6. TESTOSTERONE [Concomitant]
  7. VYTORIN [Concomitant]
  8. GLUCOPHAGE /USA/ (METFORMIN HYDROCHLORIDE) [Concomitant]
  9. TRICOR [Concomitant]
  10. ALLOPURINOL [Concomitant]
  11. NEURONTIN [Concomitant]
  12. NEXIUM [Concomitant]
  13. HYDROCHLOROTHIAZIDE [Concomitant]
  14. TRAMADOL HCL [Concomitant]
  15. TYLENOL W/ CODEINE NO. 3 [Concomitant]

REACTIONS (1)
  - BLOOD PRESSURE INCREASED [None]
